FAERS Safety Report 24804082 (Version 1)
Quarter: 2025Q1

REPORT INFORMATION
  Report Type: Spontaneous
  Country: SE (occurrence: SE)
  Receive Date: 20250103
  Receipt Date: 20250103
  Transmission Date: 20250408
  Serious: Yes (Hospitalization)
  Sender: ACCORD
  Company Number: None

PATIENT
  Age: 73 Year
  Sex: Female

DRUGS (4)
  1. ROSUVASTATIN CALCIUM [Suspect]
     Active Substance: ROSUVASTATIN CALCIUM
     Indication: Product used for unknown indication
  2. ASPIRIN [Concomitant]
     Active Substance: ASPIRIN
  3. MEMANTINE [Concomitant]
     Active Substance: MEMANTINE
  4. EXELON [Concomitant]
     Active Substance: RIVASTIGMINE TARTRATE

REACTIONS (4)
  - Balance disorder [Recovering/Resolving]
  - Dizziness [Recovering/Resolving]
  - Illusion [Recovering/Resolving]
  - Head discomfort [Recovering/Resolving]

NARRATIVE: CASE EVENT DATE: 20240901
